FAERS Safety Report 8559425-5 (Version None)
Quarter: 2012Q3

REPORT INFORMATION
  Report Type: 
  Country: None (occurrence: None)
  Receive Date: 20120802
  Receipt Date: 20120730
  Transmission Date: 20120928
  Serious: Yes (Death)
  Sender: FDA-Public Use
  Company Number: US-JNJFOC-20120715397

PATIENT
  Age: 85 Year

DRUGS (12)
  1. CYCLOPHOSPHAMIDE [Suspect]
     Route: 065
  2. RITUXAN [Suspect]
     Indication: DIFFUSE LARGE B-CELL LYMPHOMA
     Route: 065
  3. DOXORUBICIN HYDROCHLORIDE [Suspect]
     Indication: DIFFUSE LARGE B-CELL LYMPHOMA
     Dosage: REDUCED DOSE
     Route: 042
  4. DOXORUBICIN HYDROCHLORIDE [Suspect]
     Route: 042
  5. RITUXAN [Suspect]
     Dosage: REDUCED DOSE
     Route: 065
  6. PREDNISONE [Suspect]
     Indication: DIFFUSE LARGE B-CELL LYMPHOMA
     Dosage: REDUCED DOSE
     Route: 065
  7. NEUPOGEN [Concomitant]
     Indication: PROPHYLAXIS
     Route: 065
  8. RADIOTHERAPY [Suspect]
     Indication: DIFFUSE LARGE B-CELL LYMPHOMA
     Route: 065
  9. PREDNISONE [Suspect]
     Dosage: DAILY FOR 5 DAYS
     Route: 065
  10. CYCLOPHOSPHAMIDE [Suspect]
     Indication: DIFFUSE LARGE B-CELL LYMPHOMA
     Dosage: REDUCED DOSE
     Route: 065
  11. VINCRISTINE [Suspect]
     Indication: DIFFUSE LARGE B-CELL LYMPHOMA
     Route: 065
  12. VINCRISTINE [Suspect]
     Dosage: REDUCED DOSE
     Route: 065

REACTIONS (1)
  - CARDIOMYOPATHY [None]
